FAERS Safety Report 21515466 (Version 1)
Quarter: 2022Q4

REPORT INFORMATION
  Report Type: Spontaneous
  Country: US (occurrence: US)
  Receive Date: 20221027
  Receipt Date: 20221027
  Transmission Date: 20230113
  Serious: No
  Sender: FDA-Public Use
  Company Number: US-PROPHARMA-528

PATIENT
  Sex: Female

DRUGS (2)
  1. AYVAKIT [Suspect]
     Active Substance: AVAPRITINIB
     Indication: Myelodysplastic syndrome
     Route: 065
     Dates: start: 20211103
  2. AYVAKIT [Suspect]
     Active Substance: AVAPRITINIB
     Indication: Systemic mastocytosis

REACTIONS (4)
  - Nausea [Unknown]
  - Vomiting [Unknown]
  - Hypotension [Unknown]
  - Off label use [Unknown]
